FAERS Safety Report 13002262 (Version 2)
Quarter: 2016Q4

REPORT INFORMATION
  Report Type: Report from Study
  Country: US (occurrence: US)
  Receive Date: 20161206
  Receipt Date: 20161212
  Transmission Date: 20170207
  Serious: Yes (Hospitalization)
  Sender: FDA-Public Use
  Company Number: US-JNJFOC-20160913145

PATIENT
  Sex: Female

DRUGS (10)
  1. RENVELA [Concomitant]
     Active Substance: SEVELAMER CARBONATE
  2. IMBRUVICA [Suspect]
     Active Substance: IBRUTINIB
     Indication: WALDENSTROM^S MACROGLOBULINAEMIA
     Route: 048
     Dates: start: 20160805
  3. LIPITOR [Concomitant]
     Active Substance: ATORVASTATIN CALCIUM
  4. CLONIDINE. [Concomitant]
     Active Substance: CLONIDINE
  5. ONDANSETRON [Concomitant]
     Active Substance: ONDANSETRON
  6. COREG [Concomitant]
     Active Substance: CARVEDILOL
  7. IRBESARTAN. [Concomitant]
     Active Substance: IRBESARTAN
  8. LANTUS [Concomitant]
     Active Substance: INSULIN GLARGINE
  9. ALLOPURINOL. [Concomitant]
     Active Substance: ALLOPURINOL
  10. FOLIC ACID. [Concomitant]
     Active Substance: FOLIC ACID

REACTIONS (5)
  - Poor peripheral circulation [Not Recovered/Not Resolved]
  - Pain in extremity [Not Recovered/Not Resolved]
  - Blood glucose decreased [Unknown]
  - Diabetes mellitus [Unknown]
  - Drug dose omission [Recovered/Resolved]
